FAERS Safety Report 10395296 (Version 2)
Quarter: 2015Q1

REPORT INFORMATION
  Report Type: Spontaneous
  Country: US (occurrence: None)
  Receive Date: 20140818
  Receipt Date: 20150115
  Transmission Date: 20150720
  Serious: Yes (Hospitalization)
  Sender: FDA-Public Use
  Company Number: 2014-US-009900

PATIENT
  Age: 31 Year
  Sex: Female
  Weight: 56.7 kg

DRUGS (11)
  1. XYREM [Suspect]
     Active Substance: SODIUM OXYBATE
     Indication: CATAPLEXY
     Route: 048
     Dates: start: 201208, end: 2012
  2. LAMICTAL [Concomitant]
     Active Substance: LAMOTRIGINE
  3. CLINDAMYCIN HYDROCHLORIDE. [Concomitant]
     Active Substance: CLINDAMYCIN HYDROCHLORIDE
  4. XYREM [Suspect]
     Active Substance: SODIUM OXYBATE
     Indication: NARCOLEPSY
     Route: 048
     Dates: start: 201208, end: 2012
  5. KEPPRA [Concomitant]
     Active Substance: LEVETIRACETAM
  6. NIFEDIPINE ER (NIFEDIPINE) [Concomitant]
  7. SERTRALINE [Concomitant]
     Active Substance: SERTRALINE HYDROCHLORIDE
  8. CELEXA (CELECOXIB) [Concomitant]
  9. NASONEX [Concomitant]
     Active Substance: MOMETASONE FUROATE
  10. TRETINOIN TOCOFERIL [Concomitant]
  11. SINGULAR (MONTELUKAST SODIUM) [Concomitant]

REACTIONS (6)
  - Torticollis [None]
  - Chest pain [None]
  - Paraesthesia [None]
  - Cerebrovascular accident [None]
  - Gastrooesophageal reflux disease [None]
  - Disorientation [None]

NARRATIVE: CASE EVENT DATE: 2013
